FAERS Safety Report 10247912 (Version 1)
Quarter: 2014Q2

REPORT INFORMATION
  Report Type: Spontaneous
  Country: US (occurrence: US)
  Receive Date: 20140619
  Receipt Date: 20140619
  Transmission Date: 20141212
  Serious: Yes (Hospitalization)
  Sender: FDA-Public Use
  Company Number: US-B.I. PHARMACEUTICALS,INC./RIDGEFIELD-2014-BI-27428BP

PATIENT
  Age: 66 Year
  Sex: Male

DRUGS (13)
  1. PRADAXA [Suspect]
     Indication: CEREBROVASCULAR ACCIDENT PROPHYLAXIS
     Dosage: 300 MG
     Route: 048
     Dates: start: 201305
  2. PRADAXA [Suspect]
     Indication: ATRIAL FIBRILLATION
  3. SPIRIVA [Concomitant]
     Indication: CHRONIC OBSTRUCTIVE PULMONARY DISEASE
     Route: 055
  4. ADVAIR [Concomitant]
     Dosage: FORMULATION: INHALATION SPRAY
     Route: 055
  5. ALBUTEROL [Concomitant]
     Dosage: FORMULATION:INHALATION SPRAY
     Route: 055
  6. DUONEB [Concomitant]
     Dosage: FORMULATION: INHALATION SPRAY
     Route: 055
  7. OMEPRAZOLE [Concomitant]
     Route: 048
  8. NIACOR [Concomitant]
     Route: 048
  9. LOVAZA [Concomitant]
     Route: 048
  10. LOPRESSOR [Concomitant]
     Route: 048
  11. GAPAPENTIN [Concomitant]
     Route: 048
  12. WELLBUTRIN [Concomitant]
     Route: 048
  13. VITAMIN D3 [Concomitant]
     Route: 048

REACTIONS (1)
  - Ischaemic stroke [Recovered/Resolved with Sequelae]
